FAERS Safety Report 5253992-5 (Version None)
Quarter: 2007Q1

REPORT INFORMATION
  Report Type: 
  Country: None (occurrence: None)
  Receive Date: 20070302
  Receipt Date: 20070220
  Transmission Date: 20070707
  Serious: Yes (Hospitalization)
  Sender: FDA-Public Use
  Company Number: US-JNJFOC-20070204769

PATIENT
  Sex: Male

DRUGS (7)
  1. RISPERDAL CONSTA [Suspect]
     Indication: SCHIZOPHRENIA
     Route: 030
  2. RISPERDAL [Suspect]
     Indication: SCHIZOPHRENIA
     Route: 048
  3. CLOZARIL [Concomitant]
     Indication: SCHIZOPHRENIA
     Route: 048
  4. KLONIPIN [Concomitant]
     Route: 048
  5. EFFEXOR [Concomitant]
     Indication: SCHIZOPHRENIA
     Route: 048
  6. SENNA [Concomitant]
     Route: 048
  7. COLACE [Concomitant]
     Route: 048

REACTIONS (2)
  - HEADACHE [None]
  - HOSPITALISATION [None]
